FAERS Safety Report 7339028-0 (Version None)
Quarter: 2011Q1

REPORT INFORMATION
  Report Type: 
  Country: None (occurrence: None)
  Receive Date: 20110308
  Receipt Date: 20110223
  Transmission Date: 20110831
  Serious: Yes (Death, Hospitalization, Other)
  Sender: FDA-Public Use
  Company Number: FR-ELI_LILLY_AND_COMPANY-FR201102006777

PATIENT
  Sex: Male

DRUGS (10)
  1. CYMBALTA [Suspect]
     Dosage: 60 MG, DAILY (1/D)
     Dates: start: 20100604, end: 20100614
  2. DEXTROPROPOXYPHENE [Concomitant]
     Dosage: UNK, UNK
     Route: 048
     Dates: start: 20100610, end: 20100614
  3. FLUOXETINE [Concomitant]
     Dates: end: 20100604
  4. KERLONE [Concomitant]
     Dosage: 20 MG, DAILY (1/D)
     Route: 048
  5. PARACETAMOL [Concomitant]
     Dosage: UNK, UNK
     Route: 048
     Dates: start: 20100610
  6. FLECAINE [Concomitant]
     Dosage: 150 MG, DAILY (1/D)
     Route: 048
  7. DELURSAN [Concomitant]
     Dosage: 500 MG, 2/D
     Dates: end: 20100618
  8. PRETERAX [Concomitant]
     Route: 048
  9. PREVISCAN [Concomitant]
     Route: 048
     Dates: end: 20100623
  10. CALCIPARINE [Concomitant]
     Dates: start: 20100601

REACTIONS (12)
  - INTERNATIONAL NORMALISED RATIO INCREASED [None]
  - PALLOR [None]
  - PLATELET COUNT DECREASED [None]
  - CREATININE RENAL CLEARANCE DECREASED [None]
  - INFECTION [None]
  - DEATH [None]
  - FALL [None]
  - HAEMATOMA [None]
  - GAIT DISTURBANCE [None]
  - MUSCLE HAEMORRHAGE [None]
  - HAEMOGLOBIN DECREASED [None]
  - HAEMATURIA [None]
